FAERS Safety Report 5803904-8 (Version None)
Quarter: 2008Q3

REPORT INFORMATION
  Report Type: 
  Country: None (occurrence: None)
  Receive Date: 20080707
  Receipt Date: 20080619
  Transmission Date: 20090109
  Serious: Yes (Hospitalization)
  Sender: FDA-Public Use
  Company Number: S08-FRA-02228-01

PATIENT
  Age: 21 Year
  Sex: Female

DRUGS (3)
  1. SEROPLEX (ESCITALOPRAM) [Suspect]
  2. LEXOMIL (BROMAZEPAM) [Concomitant]
  3. JASMINELLE [Concomitant]

REACTIONS (1)
  - OVARIAN CYST RUPTURED [None]
